FAERS Safety Report 13571964 (Version 1)
Quarter: 2017Q2

REPORT INFORMATION
  Report Type: Spontaneous
  Country: IN (occurrence: IN)
  Receive Date: 20170523
  Receipt Date: 20170523
  Transmission Date: 20170830
  Serious: Yes (Hospitalization, Other)
  Sender: FDA-Public Use
  Company Number: IN-NOVOPROD-537602

PATIENT
  Sex: Female

DRUGS (1)
  1. VICTOZA [Suspect]
     Active Substance: LIRAGLUTIDE
     Indication: TYPE 2 DIABETES MELLITUS
     Dosage: FOR 1-2 MONTHS
     Route: 058

REACTIONS (2)
  - Hepatic cirrhosis [Not Recovered/Not Resolved]
  - Varices oesophageal [Not Recovered/Not Resolved]
